FAERS Safety Report 15658446 (Version 12)
Quarter: 2020Q2

REPORT INFORMATION
  Report Type: Report from Study
  Country: US (occurrence: US)
  Receive Date: 20181126
  Receipt Date: 20200608
  Transmission Date: 20200713
  Serious: Yes (Death, Hospitalization)
  Sender: FDA-Public Use
  Company Number: US-ACTELION-A-US2018-179932

PATIENT
  Age: 60 Year
  Sex: Male
  Weight: 93.42 kg

DRUGS (9)
  1. ORENITRAM [Suspect]
     Active Substance: TREPROSTINIL
     Indication: PRODUCT USED FOR UNKNOWN INDICATION
     Route: 065
  2. OPSUMIT [Suspect]
     Active Substance: MACITENTAN
     Dosage: 10 MG, BID
     Route: 048
  3. REMODULIN [Suspect]
     Active Substance: TREPROSTINIL
     Indication: PRODUCT USED FOR UNKNOWN INDICATION
     Dosage: UNK
     Route: 058
     Dates: start: 201906
  4. SILDENAFIL CITRATE. [Concomitant]
     Active Substance: SILDENAFIL CITRATE
  5. ADEMPAS [Suspect]
     Active Substance: RIOCIGUAT
     Indication: PRODUCT USED FOR UNKNOWN INDICATION
     Dosage: 1.5 MG, TID
     Route: 065
  6. OPSUMIT [Suspect]
     Active Substance: MACITENTAN
     Indication: PULMONARY HYPERTENSION
     Dosage: 10 MG, QD
     Route: 048
  7. ADCIRCA [Concomitant]
     Active Substance: TADALAFIL
  8. TYVASO [Concomitant]
     Active Substance: TREPROSTINIL
     Dosage: 18 BREATHS PER SESSION
  9. TADALAFIL. [Concomitant]
     Active Substance: TADALAFIL

REACTIONS (24)
  - Fluid retention [Unknown]
  - Pericardial effusion [Unknown]
  - Dehydration [Unknown]
  - Abdominal discomfort [Unknown]
  - Right ventricular dysfunction [Unknown]
  - Dyspnoea [Not Recovered/Not Resolved]
  - Catheter site pain [Unknown]
  - Headache [Not Recovered/Not Resolved]
  - Constipation [Unknown]
  - Depression [Unknown]
  - Productive cough [Unknown]
  - Gait inability [Not Recovered/Not Resolved]
  - Death [Fatal]
  - Disease progression [Unknown]
  - Abdominal pain upper [Not Recovered/Not Resolved]
  - Weight increased [Unknown]
  - Dyspnoea exertional [Unknown]
  - Pulmonary arterial hypertension [Unknown]
  - Back pain [Not Recovered/Not Resolved]
  - Acne [Unknown]
  - Hospitalisation [Unknown]
  - Fluid overload [Unknown]
  - Diarrhoea [Unknown]
  - Insomnia [Unknown]

NARRATIVE: CASE EVENT DATE: 201810
